FAERS Safety Report 5978493-8 (Version None)
Quarter: 2008Q4

REPORT INFORMATION
  Report Type: 
  Country: None (occurrence: None)
  Receive Date: 20081204
  Receipt Date: 20080924
  Transmission Date: 20090506
  Serious: No
  Sender: FDA-Public Use
  Company Number: US-BAYER-200813893BCC

PATIENT
  Sex: Female

DRUGS (1)
  1. MIDOL (FORMULATION NOT SPECIFIED) [Suspect]
     Indication: ORAL PAIN
     Route: 048
     Dates: start: 20080923

REACTIONS (1)
  - SLEEP DISORDER [None]
